FAERS Safety Report 5326637-3 (Version None)
Quarter: 2007Q2

REPORT INFORMATION
  Report Type: 
  Country: None (occurrence: None)
  Receive Date: 20070516
  Receipt Date: 20070507
  Transmission Date: 20071010
  Serious: Yes (Hospitalization, Other)
  Sender: FDA-Public Use
  Company Number: US-PFIZER INC-2005024430

PATIENT
  Sex: Male

DRUGS (11)
  1. NEURONTIN [Suspect]
     Indication: BIPOLAR DISORDER
  2. SEROQUEL [Suspect]
  3. ACETYLSALICYLIC ACID SRT [Suspect]
  4. PAXIL [Concomitant]
  5. DEPAKOTE [Concomitant]
  6. TRAZODONE HCL [Concomitant]
  7. LITHIUM CARBONATE [Concomitant]
  8. CLONAZEPAM [Concomitant]
  9. AMBIEN [Concomitant]
  10. XANAX [Concomitant]
  11. ZANTAC [Concomitant]

REACTIONS (7)
  - COMPARTMENT SYNDROME [None]
  - OVERDOSE [None]
  - RENAL FAILURE [None]
  - RHABDOMYOLYSIS [None]
  - SCAR [None]
  - SUICIDAL IDEATION [None]
  - SUICIDE ATTEMPT [None]
